FAERS Safety Report 17525157 (Version 5)
Quarter: 2020Q3

REPORT INFORMATION
  Report Type: Spontaneous
  Country: AU (occurrence: AU)
  Receive Date: 20200311
  Receipt Date: 20200910
  Transmission Date: 20201102
  Serious: Yes (Hospitalization)
  Sender: FDA-Public Use
  Company Number: AU-BIOGEN-2020BI00846503

PATIENT
  Age: 5 Month
  Sex: Female

DRUGS (2)
  1. SPINRAZA [Suspect]
     Active Substance: NUSINERSEN
     Indication: SPINAL MUSCULAR ATROPHY
     Dosage: LOADING DOSE
     Route: 037
     Dates: start: 201911, end: 202004
  2. SPINRAZA [Suspect]
     Active Substance: NUSINERSEN
     Route: 065
     Dates: start: 20200115

REACTIONS (6)
  - Partial seizures [Unknown]
  - Respiratory muscle weakness [Not Recovered/Not Resolved]
  - Tachypnoea [Unknown]
  - Vasculitis [Unknown]
  - Ischaemic stroke [Unknown]
  - Apnoea [Unknown]

NARRATIVE: CASE EVENT DATE: 2020
